FAERS Safety Report 6253398-6 (Version None)
Quarter: 2009Q3

REPORT INFORMATION
  Report Type: 
  Country: None (occurrence: None)
  Receive Date: 20090701
  Receipt Date: 20090622
  Transmission Date: 20100115
  Serious: Yes (Hospitalization)
  Sender: FDA-Public Use
  Company Number: SE-NOVOPROD-288682

PATIENT
  Age: 80 Year
  Sex: Male

DRUGS (2)
  1. INSULATARD FLEXPEN [Suspect]
     Indication: DIABETES MELLITUS
  2. NOVORAPID [Suspect]
     Indication: DRUG USE FOR UNKNOWN INDICATION

REACTIONS (2)
  - HEMIPLEGIA [None]
  - HYPOGLYCAEMIC UNCONSCIOUSNESS [None]
